FAERS Safety Report 4419092-9 (Version None)
Quarter: 2004Q3

REPORT INFORMATION
  Report Type: 
  Country: None (occurrence: None)
  Receive Date: 20040809
  Receipt Date: 20040114
  Transmission Date: 20050211
  Serious: No
  Sender: FDA-Public Use
  Company Number: US-GLAXOSMITHKLINE-A0493249A

PATIENT
  Age: 28 Year
  Sex: Male

DRUGS (3)
  1. PAXIL [Suspect]
     Dosage: 20MG PER DAY
     Route: 048
  2. NONE [Concomitant]
  3. INSULIN [Concomitant]

REACTIONS (4)
  - DEPERSONALISATION [None]
  - DIARRHOEA [None]
  - DISSOCIATION [None]
  - SEXUAL DYSFUNCTION [None]
